FAERS Safety Report 9181438 (Version 8)
Quarter: 2014Q4

REPORT INFORMATION
  Report Type: Spontaneous
  Country: US (occurrence: US)
  Receive Date: 20130322
  Receipt Date: 20141030
  Transmission Date: 20150529
  Serious: Yes (Hospitalization, Other)
  Sender: FDA-Public Use
  Company Number: US-009507513-1303USA010352

PATIENT
  Sex: Male
  Weight: 93.42 kg

DRUGS (1)
  1. PROPECIA [Suspect]
     Active Substance: FINASTERIDE
     Indication: ALOPECIA
     Dosage: 1 MG, QD
     Route: 048
     Dates: start: 2002, end: 20100903

REACTIONS (25)
  - Cough [Not Recovered/Not Resolved]
  - Knee operation [Unknown]
  - Dyslipidaemia [Unknown]
  - Anxiety [Unknown]
  - Nephrolithiasis [Unknown]
  - Sinus disorder [Unknown]
  - Hypertension [Unknown]
  - Glossodynia [Unknown]
  - Coronary artery disease [Unknown]
  - Lower urinary tract symptoms [Unknown]
  - Prostate cancer [Unknown]
  - Myocardial infarction [Unknown]
  - Pollakiuria [Unknown]
  - Cardiac disorder [Unknown]
  - Erectile dysfunction [Unknown]
  - Haematuria [Unknown]
  - Dizziness [Unknown]
  - Systemic lupus erythematosus [Unknown]
  - Cognitive disorder [Unknown]
  - Sexual dysfunction [Unknown]
  - Amnesia [Unknown]
  - Dysphagia [Unknown]
  - Asthenia [Unknown]
  - Depression [Unknown]
  - Gynaecomastia [Unknown]

NARRATIVE: CASE EVENT DATE: 200212
